FAERS Safety Report 11545896 (Version 1)
Quarter: 2015Q3

REPORT INFORMATION
  Report Type: Spontaneous
  Country: AU (occurrence: AU)
  Receive Date: 20150924
  Receipt Date: 20150924
  Transmission Date: 20151125
  Serious: Yes (Other)
  Sender: FDA-Public Use
  Company Number: AU-GLAXOSMITHKLINE-AU2015GSK135959

PATIENT
  Sex: Female

DRUGS (1)
  1. ZINNAT [Suspect]
     Active Substance: CEFUROXIME AXETIL
     Indication: SINUSITIS
     Dosage: UNK
     Dates: start: 20150626

REACTIONS (6)
  - Diarrhoea [Unknown]
  - Headache [Unknown]
  - Pyrexia [Unknown]
  - Vomiting [Unknown]
  - Contraindicated drug administered [Unknown]
  - Hypersensitivity [Unknown]
